FAERS Safety Report 5786683-2 (Version None)
Quarter: 2008Q2

REPORT INFORMATION
  Report Type: 
  Country: None (occurrence: None)
  Receive Date: 20080624
  Receipt Date: 20080611
  Transmission Date: 20081010
  Serious: Yes (Hospitalization)
  Sender: FDA-Public Use
  Company Number: US-ELI_LILLY_AND_COMPANY-US200709006817

PATIENT
  Sex: Male
  Weight: 75.283 kg

DRUGS (12)
  1. INSULIN DETEMIR [Suspect]
     Indication: TYPE 1 DIABETES MELLITUS
     Dosage: 31 IU, DAILY (1/D)
     Route: 058
     Dates: start: 20070726
  2. HUMALOG [Suspect]
     Indication: TYPE 1 DIABETES MELLITUS
     Dosage: 37 IU, DAILY (1/D)
     Route: 058
     Dates: start: 20070726
  3. ATENOLOL [Concomitant]
     Indication: HYPERTENSION
     Dosage: 50 MG, UNK
     Dates: start: 20050325
  4. LASIX [Concomitant]
     Indication: HYPERTENSION
     Dosage: 20 MG, UNK
     Dates: start: 20050101
  5. PLAVIX [Concomitant]
     Indication: HYPERTENSION
     Dosage: 75 MG, UNK
     Dates: start: 20050404
  6. ACCUPRIL [Concomitant]
     Indication: HYPERTENSION
     Dosage: 5 MG, UNK
     Dates: start: 20050325
  7. BENICAR [Concomitant]
     Indication: HYPERTENSION
     Dates: start: 20070505
  8. MULTI-VITAMIN [Concomitant]
     Indication: PROPHYLAXIS
     Dates: start: 20050325
  9. ASPIRIN [Concomitant]
     Indication: PROPHYLAXIS
     Dosage: 325 MG, UNK
     Dates: start: 20050325
  10. DICLOFENAC SODIUM [Concomitant]
     Indication: OSTEOARTHRITIS
     Dosage: 150 MG, UNK
     Dates: start: 20060101
  11. VALTRAX [Concomitant]
     Indication: HERPES VIRUS INFECTION
     Dosage: 500 MG, UNK
     Dates: start: 20060101
  12. CEPHALEXIN [Concomitant]
     Indication: WOUND INFECTION
     Dates: start: 20070712

REACTIONS (1)
  - OSTEOMYELITIS [None]
